FAERS Safety Report 7808644-1 (Version None)
Quarter: 2011Q4

REPORT INFORMATION
  Report Type: 
  Country: None (occurrence: None)
  Receive Date: 20111006
  Receipt Date: 20110930
  Transmission Date: 20120403
  Serious: Yes (Other)
  Sender: FDA-Public Use
  Company Number: GRP11000083

PATIENT
  Age: 83 Year
  Sex: Female
  Weight: 68 kg

DRUGS (2)
  1. VIGANTOLETTEN (COLECALCIFEROL) [Suspect]
     Indication: OSTEOPOROSIS POSTMENOPAUSAL
     Dosage: ORAL
     Route: 048
     Dates: start: 20100701, end: 20110101
  2. ACTONEL [Suspect]
     Indication: OSTEOPOROSIS POSTMENOPAUSAL
     Dosage: 35 MG, 1/WEEK, ORAL
     Route: 048
     Dates: start: 20100701, end: 20110101

REACTIONS (4)
  - ANXIETY [None]
  - ANGINA PECTORIS [None]
  - ARRHYTHMIA [None]
  - RESTLESSNESS [None]
